FAERS Safety Report 20234475 (Version 1)
Quarter: 2021Q4

REPORT INFORMATION
  Report Type: Spontaneous
  Country: US (occurrence: US)
  Receive Date: 20211227
  Receipt Date: 20211227
  Transmission Date: 20220303
  Serious: No
  Sender: FDA-Public Use
  Company Number: US-AMGEN-USASP2021204234

PATIENT
  Sex: Female

DRUGS (1)
  1. ENBREL [Suspect]
     Active Substance: ETANERCEPT
     Indication: Osteoarthritis
     Dosage: 50 MILLIGRAM, QWK
     Route: 058

REACTIONS (1)
  - Joint swelling [Not Recovered/Not Resolved]
